FAERS Safety Report 8540327-5 (Version None)
Quarter: 2012Q3

REPORT INFORMATION
  Report Type: 
  Country: None (occurrence: None)
  Receive Date: 20120726
  Receipt Date: 20120720
  Transmission Date: 20120928
  Serious: No
  Sender: FDA-Public Use
  Company Number: US-BAYER-2012-073323

PATIENT
  Sex: Female
  Weight: 94 kg

DRUGS (6)
  1. TOPROL-XL [Concomitant]
     Dosage: 25 MG, UNK
  2. DYAZIDE [Concomitant]
  3. BETASERON [Suspect]
     Dosage: 0.25 MG, QOD
     Route: 058
  4. PREMARIN [Concomitant]
     Dosage: 0.9 MG, UNK
  5. MOBIC [Concomitant]
     Dosage: 7.5 MG, UNK
  6. DIOVAN [Concomitant]
     Dosage: 160 MG, UNK

REACTIONS (3)
  - INJECTION SITE MASS [None]
  - INJECTION SITE PAIN [None]
  - INJECTION SITE RASH [None]
